FAERS Safety Report 8874019 (Version 2)
Quarter: 2012Q4

REPORT INFORMATION
  Report Type: Report from Study
  Country: US (occurrence: US)
  Receive Date: 20121030
  Receipt Date: 20121114
  Transmission Date: 20130627
  Serious: Yes (Death)
  Sender: FDA-Public Use
  Company Number: US-BAXTER-2012BAX020979

PATIENT
  Sex: Female

DRUGS (2)
  1. ARALAST NP [Suspect]
     Indication: ALPHA-1 ANTI-TRYPSIN DEFICIENCY
     Route: 042
     Dates: start: 1992, end: 200903
  2. ARALAST NP [Suspect]
     Route: 042
     Dates: start: 201106

REACTIONS (1)
  - Obliterative bronchiolitis [Fatal]
